FAERS Safety Report 21468426 (Version 2)
Quarter: 2022Q4

REPORT INFORMATION
  Report Type: Spontaneous
  Country: JP (occurrence: JP)
  Receive Date: 20221017
  Receipt Date: 20221209
  Transmission Date: 20230113
  Serious: Yes (Other)
  Sender: FDA-Public Use
  Company Number: JP-NOVARTISPH-NVSJ2022JP098969

PATIENT
  Sex: Female

DRUGS (1)
  1. KYMRIAH [Suspect]
     Active Substance: TISAGENLECLEUCEL
     Indication: Central nervous system lymphoma
     Dosage: UNK
     Route: 041

REACTIONS (3)
  - Hydrocephalus [Unknown]
  - Central nervous system lymphoma [Recovering/Resolving]
  - Recurrent cancer [Recovering/Resolving]
